FAERS Safety Report 9011799 (Version 1)
Quarter: 2013Q1

REPORT INFORMATION
  Report Type: Report from Study
  Country: JP (occurrence: JP)
  Receive Date: 20130113
  Receipt Date: 20130113
  Transmission Date: 20140127
  Serious: Yes (Other)
  Sender: FDA-Public Use
  Company Number: PHHY2012JP075455

PATIENT
  Age: 36 Year
  Sex: Male

DRUGS (1)
  1. LEPONEX / CLOZARIL [Suspect]
     Indication: SCHIZOPHRENIA
     Dosage: UNK
     Route: 048
     Dates: start: 20120815

REACTIONS (5)
  - Shock [Unknown]
  - Interstitial lung disease [Unknown]
  - Infection [Unknown]
  - Salivary hypersecretion [Unknown]
  - Pyrexia [Unknown]
